FAERS Safety Report 10016450 (Version 1)
Quarter: 2014Q1

REPORT INFORMATION
  Report Type: Report from Study
  Country: US (occurrence: US)
  Receive Date: 20140317
  Receipt Date: 20140317
  Transmission Date: 20141002
  Serious: Yes (Hospitalization)
  Sender: FDA-Public Use
  Company Number: US-ABBVIE-14P-163-1209670-00

PATIENT
  Age: 64 Year
  Sex: Male

DRUGS (5)
  1. HUMIRA [Suspect]
     Indication: CROHN^S DISEASE
     Dates: start: 2009
  2. ASACOL [Concomitant]
     Indication: CROHN^S DISEASE
  3. HYDROCODONE [Concomitant]
     Indication: PAIN
     Dosage: 10/325 MG
  4. LOSARTAN [Concomitant]
     Indication: HYPERTENSION
  5. PREDNISONE [Concomitant]
     Indication: PRODUCT USED FOR UNKNOWN INDICATION

REACTIONS (6)
  - Small intestinal obstruction [Not Recovered/Not Resolved]
  - Pneumonia [Not Recovered/Not Resolved]
  - Swelling [Unknown]
  - Pneumonia [Unknown]
  - Abdominal pain [Unknown]
  - Chest pain [Unknown]
